FAERS Safety Report 7493156-8 (Version None)
Quarter: 2011Q2

REPORT INFORMATION
  Report Type: 
  Country: None (occurrence: None)
  Receive Date: 20110519
  Receipt Date: 20110519
  Transmission Date: 20111010
  Serious: Yes (Other)
  Sender: FDA-Public Use
  Company Number: None

PATIENT
  Age: 59 Year
  Sex: Female
  Weight: 88.4514 kg

DRUGS (2)
  1. SIMVASTATIN [Suspect]
     Indication: BLOOD CHOLESTEROL INCREASED
     Dosage: BEDTIME
     Dates: start: 20100516, end: 20110510
  2. SIMVASTATIN [Suspect]

REACTIONS (4)
  - PRURITUS [None]
  - MUSCLE SPASMS [None]
  - PAIN [None]
  - FORMICATION [None]
